FAERS Safety Report 9163695 (Version 2)
Quarter: 2013Q2

REPORT INFORMATION
  Report Type: Spontaneous
  Country: US (occurrence: US)
  Receive Date: 20130314
  Receipt Date: 20130417
  Transmission Date: 20140414
  Serious: Yes (Hospitalization)
  Sender: FDA-Public Use
  Company Number: US-ELI_LILLY_AND_COMPANY-US201303003234

PATIENT
  Sex: Female

DRUGS (2)
  1. GEMZAR [Suspect]
     Indication: GALLBLADDER CANCER
     Dosage: 1330 MG, WEEKLY (1/W)
     Dates: start: 20111007, end: 20121210
  2. OXALIPLATIN [Concomitant]

REACTIONS (2)
  - Malignant neoplasm progression [Unknown]
  - Off label use [Unknown]
